FAERS Safety Report 8574054-5 (Version None)
Quarter: 2012Q3

REPORT INFORMATION
  Report Type: 
  Country: None (occurrence: None)
  Receive Date: 20120806
  Receipt Date: 20120801
  Transmission Date: 20120928
  Serious: Yes (Hospitalization)
  Sender: FDA-Public Use
  Company Number: US-PFIZER INC-2012187568

PATIENT
  Age: 52 Year
  Sex: Female
  Weight: 65.76 kg

DRUGS (3)
  1. EFFEXOR XR [Suspect]
     Indication: MENTAL DISORDER
  2. PREMARIN [Suspect]
     Dosage: UNK
     Dates: end: 20120701
  3. EFFEXOR XR [Suspect]
     Indication: BIPOLAR I DISORDER
     Dosage: 300 MG, DAILY
     Route: 048
     Dates: end: 20120701

REACTIONS (6)
  - CRYING [None]
  - MUSCLE SPASMS [None]
  - WITHDRAWAL SYNDROME [None]
  - DIARRHOEA [None]
  - ABDOMINAL PAIN UPPER [None]
  - MENTAL DISORDER [None]
